FAERS Safety Report 25787401 (Version 1)
Quarter: 2025Q3

REPORT INFORMATION
  Report Type: Spontaneous
  Country: US (occurrence: US)
  Receive Date: 20250910
  Receipt Date: 20250910
  Transmission Date: 20251021
  Serious: Yes (Other)
  Sender: NOVO NORDISK
  Company Number: US-NOVOPROD-1514996

PATIENT
  Age: 38 Year
  Sex: Male
  Weight: 101.13 kg

DRUGS (2)
  1. SEMAGLUTIDE [Suspect]
     Active Substance: SEMAGLUTIDE
     Indication: Weight control
     Dosage: UNK, QD
     Route: 048
  2. WEGOVY [Suspect]
     Active Substance: SEMAGLUTIDE

REACTIONS (2)
  - Haematochezia [Unknown]
  - Counterfeit product administered [Recovered/Resolved]
